FAERS Safety Report 15967206 (Version 1)
Quarter: 2019Q1

REPORT INFORMATION
  Report Type: Spontaneous
  Country: US (occurrence: US)
  Receive Date: 20190215
  Receipt Date: 20190215
  Transmission Date: 20190418
  Serious: No
  Sender: FDA-Public Use
  Company Number: None

PATIENT
  Age: 81 Year
  Sex: Female

DRUGS (6)
  1. ASPRIN 81MG [Concomitant]
  2. MYCOPHENOLATE 250MG [Concomitant]
     Active Substance: MYCOPHENOLIC ACID
  3. TACROLIMUS. [Suspect]
     Active Substance: TACROLIMUS
     Indication: RENAL TRANSPLANT
     Route: 048
  4. POTASSIUM CHLORIDE 8MEQ ER [Concomitant]
  5. METOPROLOL TARTRATE 25MG [Concomitant]
     Active Substance: METOPROLOL TARTRATE
  6. HCTZ 25MG [Concomitant]

REACTIONS (2)
  - Fall [None]
  - Dizziness [None]
